FAERS Safety Report 8789927 (Version 3)
Quarter: 2012Q4

REPORT INFORMATION
  Report Type: 
  Country: US (occurrence: US)
  Receive Date: 20120914
  Receipt Date: 20121219
  Transmission Date: 20130627
  Serious: Yes (Other)
  Sender: FDA-Public Use
  Company Number: US-ELI_LILLY_AND_COMPANY-US201209002821

PATIENT
  Age: 65 Year
  Sex: Female
  Weight: 53.18 kg

DRUGS (10)
  1. HUMALOG 50% LISPRO, 50% NPL [Suspect]
     Indication: TYPE 2 DIABETES MELLITUS
     Dosage: 10 u, bid
     Dates: start: 201207
  2. HUMALOG 50% LISPRO, 50% NPL [Suspect]
     Dosage: 8 u, bid
  3. EXENATIDE [Concomitant]
  4. DILTIAZEM [Concomitant]
     Dosage: 120 mg, qd
  5. LEVOXYL [Concomitant]
     Indication: THYROID DISORDER
  6. PRAVASTATIN [Concomitant]
     Dosage: UNK, unknown
     Route: 048
  7. LANTUS [Concomitant]
     Dosage: UNK, unknown
  8. ALLEGRA [Concomitant]
     Dosage: UNK, unknown
     Route: 048
  9. METFORMIN [Concomitant]
     Dosage: UNK, unknown
  10. TYLENOL PM [Concomitant]
     Dosage: UNK, unknown
     Route: 048

REACTIONS (5)
  - Palpitations [Recovered/Resolved]
  - Blood glucose increased [Recovered/Resolved]
  - Malaise [Recovered/Resolved]
  - Tremor [Recovered/Resolved]
  - Hypoglycaemia [Recovered/Resolved]
